FAERS Safety Report 14645976 (Version 1)
Quarter: 2018Q1

REPORT INFORMATION
  Report Type: Spontaneous
  Country: IT (occurrence: IT)
  Receive Date: 20180316
  Receipt Date: 20180316
  Transmission Date: 20180509
  Serious: Yes (Other)
  Sender: FDA-Public Use
  Company Number: IT-OCTA-LIT09518IT

PATIENT
  Age: 57 Year
  Sex: Female

DRUGS (3)
  1. HUMAN NORMAL IMMUNOGLOBULIN (IV) [Suspect]
     Active Substance: HUMAN IMMUNOGLOBULIN G
     Indication: OVARIAN CANCER
     Route: 042
  2. ASPIRIN. [Concomitant]
     Active Substance: ASPIRIN
     Indication: HEMIPARESIS
  3. WARFARIN [Concomitant]
     Active Substance: WARFARIN
     Indication: PRODUCT USED FOR UNKNOWN INDICATION

REACTIONS (2)
  - Drug ineffective for unapproved indication [Unknown]
  - Ischaemic stroke [Recovered/Resolved]
